FAERS Safety Report 9521925 (Version 2)
Quarter: 2013Q4

REPORT INFORMATION
  Report Type: Spontaneous
  Country: US (occurrence: US)
  Receive Date: 20130913
  Receipt Date: 20131016
  Transmission Date: 20140711
  Serious: Yes (Life-Threatening)
  Sender: FDA-Public Use
  Company Number: US-JNJFOC-20130904685

PATIENT
  Age: 84 Year
  Sex: Male

DRUGS (9)
  1. XARELTO [Suspect]
     Indication: CEREBROVASCULAR ACCIDENT PROPHYLAXIS
     Route: 048
     Dates: start: 20130612, end: 20130826
  2. XARELTO [Suspect]
     Indication: ATRIAL FIBRILLATION
     Route: 048
     Dates: start: 20130612, end: 20130826
  3. LOVENOX [Suspect]
     Indication: PRODUCT USED FOR UNKNOWN INDICATION
     Dosage: 100 MG/ML, SOLUTION, 0.4 ML, ONCE A DAY
     Route: 065
  4. LISINOPRIL/HCTZ [Concomitant]
     Indication: PRODUCT USED FOR UNKNOWN INDICATION
     Dosage: 20-25 MG
     Route: 065
  5. DIGOXIN [Concomitant]
     Indication: PRODUCT USED FOR UNKNOWN INDICATION
     Route: 065
  6. COREG [Concomitant]
     Indication: PRODUCT USED FOR UNKNOWN INDICATION
     Dosage: 24 HOURS 1 CAPSULE WITH FOOD ONCE A DAY
     Route: 065
  7. LOTRISONE [Concomitant]
     Dosage: 1-0.05% CREAM 1 APPLICATION TO AFFECTED AREA ONCE A DAY
     Route: 065
  8. LISINOPRIL [Concomitant]
     Route: 065
  9. LEVOFLOXACIN [Concomitant]
     Route: 065

REACTIONS (3)
  - Deep vein thrombosis [Recovering/Resolving]
  - Laceration [Recovering/Resolving]
  - Drug ineffective [Unknown]
